FAERS Safety Report 8059595-1 (Version None)
Quarter: 2012Q1

REPORT INFORMATION
  Report Type: 
  Country: None (occurrence: None)
  Receive Date: 20120120
  Receipt Date: 20120111
  Transmission Date: 20120608
  Serious: Yes (Hospitalization)
  Sender: FDA-Public Use
  Company Number: PHHY2011AU112909

PATIENT
  Sex: Male

DRUGS (3)
  1. LITHIUM [Suspect]
  2. CLOZARIL [Suspect]
     Dosage: 700 MG
     Dates: start: 20040209, end: 20111223
  3. QUETIAPINE [Concomitant]

REACTIONS (2)
  - ANTIPSYCHOTIC DRUG LEVEL INCREASED [None]
  - POISONING [None]
